FAERS Safety Report 25299056 (Version 1)
Quarter: 2025Q2

REPORT INFORMATION
  Report Type: Spontaneous
  Country: GB (occurrence: GB)
  Receive Date: 20250512
  Receipt Date: 20250512
  Transmission Date: 20250716
  Serious: Yes (Disabling, Other)
  Sender: AUROBINDO
  Company Number: GB-MHRA-MED-202504281148382310-KBQCH

PATIENT
  Age: 30 Year
  Sex: Male
  Weight: 75 kg

DRUGS (1)
  1. CIPROFLOXACIN [Suspect]
     Active Substance: CIPROFLOXACIN
     Indication: Pouchitis
     Route: 065

REACTIONS (2)
  - Paraesthesia [Recovered/Resolved with Sequelae]
  - Palpitations [Recovered/Resolved]

NARRATIVE: CASE EVENT DATE: 20200701
